FAERS Safety Report 25080280 (Version 4)
Quarter: 2025Q1

REPORT INFORMATION
  Report Type: Report from Study
  Country: US (occurrence: US)
  Receive Date: 20250314
  Receipt Date: 20250327
  Transmission Date: 20250409
  Serious: Yes (Hospitalization)
  Sender: ABBVIE
  Company Number: US-ABBVIE-6177264

PATIENT
  Age: 64 Year
  Sex: Female
  Weight: 64 kg

DRUGS (6)
  1. VYALEV [Suspect]
     Active Substance: FOSCARBIDOPA\FOSLEVODOPA
     Indication: Parkinson^s disease
     Route: 058
     Dates: start: 20241209
  2. CALCIUM [Concomitant]
     Active Substance: CALCIUM
     Indication: Mineral supplementation
     Route: 065
     Dates: start: 20240101
  3. LOSARTAN [Concomitant]
     Active Substance: LOSARTAN
     Indication: Hypertension
     Route: 065
     Dates: start: 20250310
  4. AMLODIPINE [Concomitant]
     Active Substance: AMLODIPINE BESYLATE
     Indication: Hypertension
     Dates: start: 20240101
  5. MELATONIN [Concomitant]
     Active Substance: MELATONIN
     Indication: Sleep disorder
  6. MIRTAZAPINE [Concomitant]
     Active Substance: MIRTAZAPINE
     Indication: Sleep disorder
     Route: 065
     Dates: start: 20240101

REACTIONS (16)
  - Norovirus infection [Recovered/Resolved]
  - Vitreous detachment [Not Recovered/Not Resolved]
  - Head injury [Recovering/Resolving]
  - Catheter site pain [Recovered/Resolved]
  - Blood magnesium decreased [Recovered/Resolved]
  - Eye contusion [Unknown]
  - Fall [Recovering/Resolving]
  - Asthenia [Recovered/Resolved]
  - Blood potassium decreased [Not Recovered/Not Resolved]
  - Vision blurred [Not Recovered/Not Resolved]
  - Concussion [Recovering/Resolving]
  - Vitreous floaters [Not Recovered/Not Resolved]
  - Eye contusion [Recovering/Resolving]
  - Nausea [Recovered/Resolved]
  - Catheter site pain [Unknown]
  - Dehydration [Unknown]

NARRATIVE: CASE EVENT DATE: 20250201
